FAERS Safety Report 8184161-7 (Version None)
Quarter: 2012Q1

REPORT INFORMATION
  Report Type: 
  Country: None (occurrence: None)
  Receive Date: 20120305
  Receipt Date: 20120220
  Transmission Date: 20120608
  Serious: Yes (Death)
  Sender: FDA-Public Use
  Company Number: US-ROCHE-1033195

PATIENT
  Sex: Male

DRUGS (3)
  1. NIACIN [Concomitant]
     Indication: HYPERTENSION
     Route: 048
  2. LUCENTIS [Suspect]
     Dates: start: 20090609
  3. LUCENTIS [Suspect]
     Indication: VEIN DISORDER
     Dates: start: 20090414

REACTIONS (1)
  - DEATH [None]
